FAERS Safety Report 5797166-8 (Version None)
Quarter: 2008Q2

REPORT INFORMATION
  Report Type: 
  Country: None (occurrence: None)
  Receive Date: 20080627
  Receipt Date: 20080613
  Transmission Date: 20081010
  Serious: Yes (Hospitalization)
  Sender: FDA-Public Use
  Company Number: DSA_32035_2008

PATIENT
  Sex: Male

DRUGS (2)
  1. TAVOR          (TAVOR - LORAZEPAM) [Suspect]
     Dosage: (200 MG 1X NOT THE PRESCRIBED AMOUNT ORAL)
     Route: 048
     Dates: start: 20080612, end: 20080612
  2. LEVOPROMAZIN [Suspect]
     Dosage: (1500 MG 1X NOT THE PRESCRIBED AMOUNT ORAL)
     Route: 048
     Dates: start: 20080612, end: 20080612

REACTIONS (10)
  - BLOOD BICARBONATE DECREASED [None]
  - BLOOD PH DECREASED [None]
  - BODY TEMPERATURE DECREASED [None]
  - COMA [None]
  - HYPERGLYCAEMIA [None]
  - MIOSIS [None]
  - MULTIPLE DRUG OVERDOSE INTENTIONAL [None]
  - OXYGEN SATURATION DECREASED [None]
  - SUICIDE ATTEMPT [None]
  - TACHYCARDIA [None]
